FAERS Safety Report 11082320 (Version 9)
Quarter: 2019Q1

REPORT INFORMATION
  Report Type: Spontaneous
  Country: US (occurrence: US)
  Receive Date: 20150501
  Receipt Date: 20190214
  Transmission Date: 20190417
  Serious: Yes (Other)
  Sender: FDA-Public Use
  Company Number: US-PFIZER INC-2015143232

PATIENT
  Age: 76 Year
  Sex: Female

DRUGS (23)
  1. METFORMIN [Concomitant]
     Active Substance: METFORMIN HYDROCHLORIDE
     Indication: TYPE 2 DIABETES MELLITUS
     Dosage: 500 MG, 2X/DAY
     Route: 048
  2. NEURONTIN [Concomitant]
     Active Substance: GABAPENTIN
     Indication: HAEMORRHAGE SUBCUTANEOUS
     Dosage: 300 MG, 3X/DAY
     Route: 048
     Dates: start: 20151111
  3. TRAMADOL. [Concomitant]
     Active Substance: TRAMADOL
     Indication: NEURALGIA
     Dosage: 50 MG, (Q4-6H)
  4. DILTIAZEM. [Concomitant]
     Active Substance: DILTIAZEM
     Dosage: 180 MG, DAILY
     Route: 048
     Dates: start: 20151209, end: 20160307
  5. LYRICA [Suspect]
     Active Substance: PREGABALIN
     Dosage: 75 MG, 2X/DAY
     Route: 048
     Dates: start: 20151109, end: 20160206
  6. MIRALAX [Concomitant]
     Active Substance: POLYETHYLENE GLYCOL 3350
     Dosage: 1 DF, 2X/DAY
     Route: 048
     Dates: start: 20151203, end: 20160301
  7. OXYBUTYNIN. [Concomitant]
     Active Substance: OXYBUTYNIN CHLORIDE
     Indication: URINARY INCONTINENCE
     Dosage: 5 MG, 1X/DAY (QPM)
     Route: 048
  8. OXYBUTYNIN. [Concomitant]
     Active Substance: OXYBUTYNIN CHLORIDE
     Indication: HAEMORRHAGE SUBCUTANEOUS
     Dosage: 10 MG, 2X/DAY
     Route: 048
     Dates: start: 20151109
  9. LANTUS [Concomitant]
     Active Substance: INSULIN GLARGINE
     Dosage: 20 IU, DAILY
     Route: 058
     Dates: start: 20151209
  10. MEDIHONEY [Concomitant]
     Active Substance: HONEY
     Dosage: 1 APPLICATION, DAILY
     Dates: start: 20151203
  11. GLIMEPIRIDE. [Concomitant]
     Active Substance: GLIMEPIRIDE
     Dosage: UNK
  12. HUMULIN NOS [Concomitant]
     Active Substance: INSULIN HUMAN
     Indication: TYPE 2 DIABETES MELLITUS
     Dosage: 70/30 HUMAN RECOMBINANT 70U- 30 U/ML , 12 UNIT, 2X/DAY
     Route: 058
  13. PRAVASTATIN. [Concomitant]
     Active Substance: PRAVASTATIN
     Dosage: 40 MG, DAILY
     Route: 048
     Dates: start: 20151209, end: 20160307
  14. LISINOPRIL. [Concomitant]
     Active Substance: LISINOPRIL
     Indication: DIABETES MELLITUS
  15. ZANTAC [Concomitant]
     Active Substance: RANITIDINE HYDROCHLORIDE
     Indication: GASTROOESOPHAGEAL REFLUX DISEASE
     Dosage: 150 MG, 2X/DAY
     Route: 048
  16. COUMADIN [Concomitant]
     Active Substance: WARFARIN SODIUM
     Dosage: 10 MG, 1X/DAY
     Route: 048
     Dates: start: 20150826, end: 20160221
  17. NOVOLIN [Concomitant]
     Active Substance: INSULIN HUMAN
     Dosage: UNK
  18. FUROSEMIDE. [Concomitant]
     Active Substance: FUROSEMIDE
     Dosage: 20 MG, 1X/DAY (QAM - ONCE A DAY (IN THE MORNING))
     Route: 048
     Dates: start: 20151209
  19. RELION/NOVOLIN [Concomitant]
     Dosage: 70/30 INNOLET HUMAN RECOMBINANT 70 UNITS-30 UNITS/ML
     Route: 058
     Dates: start: 20150202
  20. FOSAMAX [Concomitant]
     Active Substance: ALENDRONATE SODIUM
     Indication: OSTEOPOROSIS
     Dosage: 70 MG, WEEKLY
     Route: 048
  21. AMARYL [Concomitant]
     Active Substance: GLIMEPIRIDE
     Indication: TYPE 2 DIABETES MELLITUS
     Dosage: 4 MG, 1X/DAY
     Route: 048
  22. LISINOPRIL. [Concomitant]
     Active Substance: LISINOPRIL
     Indication: HYPERTENSION
     Dosage: 40 MG, 1X/DAY
     Route: 048
  23. DULCOLAX NOS [Concomitant]
     Active Substance: BISACODYL OR DOCUSATE SODIUM
     Indication: CONSTIPATION
     Dosage: 10 MG, DAILY
     Route: 054
     Dates: start: 20151109

REACTIONS (10)
  - Neoplasm skin [Unknown]
  - Diabetic neuropathy [Unknown]
  - Urinary tract infection [Unknown]
  - Bronchiolitis [Unknown]
  - Skin candida [Unknown]
  - Bronchitis [Unknown]
  - Pain [Not Recovered/Not Resolved]
  - Nail candida [Unknown]
  - Dyspnoea [Unknown]
  - Insomnia [Unknown]
